FAERS Safety Report 5240446-5 (Version None)
Quarter: 2007Q1

REPORT INFORMATION
  Report Type: 
  Country: None (occurrence: None)
  Receive Date: 20070219
  Receipt Date: 20070205
  Transmission Date: 20070707
  Serious: Yes (Hospitalization, Other)
  Sender: FDA-Public Use
  Company Number: GBWYE755622AUG06

PATIENT
  Sex: Male

DRUGS (3)
  1. ENBREL [Suspect]
     Indication: PSORIATIC ARTHROPATHY
     Route: 058
     Dates: start: 20040301, end: 20060701
  2. METHOTREXATE [Suspect]
     Indication: PSORIATIC ARTHROPATHY
     Route: 048
     Dates: start: 20010601, end: 20060701
  3. FOLIC ACID [Concomitant]
     Dosage: UNKNOWN
     Route: 065

REACTIONS (2)
  - CEREBRAL TOXOPLASMOSIS [None]
  - PNEUMOCYSTIS JIROVECI PNEUMONIA [None]
